FAERS Safety Report 8254898-X (Version None)
Quarter: 2012Q2

REPORT INFORMATION
  Report Type: 
  Country: None (occurrence: None)
  Receive Date: 20120403
  Receipt Date: 20120328
  Transmission Date: 20120825
  Serious: Yes (Hospitalization, Other)
  Sender: FDA-Public Use
  Company Number: US-PFIZER INC-2012079950

PATIENT
  Sex: Male
  Weight: 88.435 kg

DRUGS (9)
  1. RAPAMUNE [Suspect]
     Indication: RENAL TRANSPLANT
     Dosage: 4 MG, 1X/DAY
     Route: 048
     Dates: start: 20040101
  2. VITAMIN E [Concomitant]
     Dosage: UNK, 1X/DAY
  3. PREDNISONE [Concomitant]
     Dosage: 5 MG, 1X/DAY
  4. DIOVAN [Concomitant]
     Dosage: 80 MG, 1X/DAY
  5. ACETYLSALICYLIC ACID [Concomitant]
     Dosage: 81 MG, 1X/DAY
  6. LOVAZA [Concomitant]
     Dosage: 2 G, 2X/DAY
  7. CRESTOR [Concomitant]
     Dosage: 10 MG, 1X/DAY
  8. RAPAMUNE [Suspect]
     Dosage: 1 MG, 1X/DAY
     Route: 048
  9. ALLOPURINOL [Concomitant]
     Dosage: 300 MG, 1X/DAY

REACTIONS (2)
  - PNEUMONIA [None]
  - INFECTION [None]
